FAERS Safety Report 21438529 (Version 2)
Quarter: 2023Q1

REPORT INFORMATION
  Report Type: Report from Study
  Country: TH (occurrence: TH)
  Receive Date: 20221011
  Receipt Date: 20230113
  Transmission Date: 20230418
  Serious: Yes (Other)
  Sender: FDA-Public Use
  Company Number: TH-NOVARTISPH-NVSC2021TH144332

PATIENT
  Sex: Female

DRUGS (19)
  1. KISQALI [Suspect]
     Active Substance: RIBOCICLIB
     Indication: Breast cancer metastatic
     Dosage: 3 DF, QD
     Route: 065
     Dates: start: 20201116, end: 202012
  2. KISQALI [Suspect]
     Active Substance: RIBOCICLIB
     Dosage: 2 DF, QD
     Route: 065
  3. KISQALI [Suspect]
     Active Substance: RIBOCICLIB
     Dosage: 200 MG
     Route: 065
     Dates: start: 20210118
  4. KISQALI [Suspect]
     Active Substance: RIBOCICLIB
     Dosage: 200 MG
     Route: 065
     Dates: start: 20210208
  5. KISQALI [Suspect]
     Active Substance: RIBOCICLIB
     Dosage: 200 MG
     Route: 065
     Dates: start: 20210405
  6. KISQALI [Suspect]
     Active Substance: RIBOCICLIB
     Dosage: 200 MG
     Route: 065
     Dates: start: 20210503
  7. KISQALI [Suspect]
     Active Substance: RIBOCICLIB
     Dosage: 200 MG
     Route: 065
     Dates: start: 20210601
  8. KISQALI [Suspect]
     Active Substance: RIBOCICLIB
     Dosage: UNK
     Route: 048
  9. TROZET [Concomitant]
     Indication: Product used for unknown indication
     Dosage: 2.5 MG
     Route: 065
     Dates: start: 20201116
  10. TROZET [Concomitant]
     Dosage: 2.5 MG
     Route: 065
     Dates: start: 20210208
  11. TROZET [Concomitant]
     Dosage: 2.5 MG
     Route: 065
     Dates: start: 20210503
  12. CALTAB [Concomitant]
     Indication: Product used for unknown indication
     Dosage: 1000 MG
     Route: 065
     Dates: start: 20201116
  13. CALTAB [Concomitant]
     Dosage: 1000 MG
     Route: 065
     Dates: start: 20210208
  14. CALTAB [Concomitant]
     Dosage: 1000 MG
     Route: 065
     Dates: start: 20210503
  15. MANIDIPINE HYDROCHLORIDE [Concomitant]
     Active Substance: MANIDIPINE HYDROCHLORIDE
     Indication: Product used for unknown indication
     Dosage: 10 MG
     Route: 065
     Dates: start: 20210118
  16. MANIDIPINE HYDROCHLORIDE [Concomitant]
     Active Substance: MANIDIPINE HYDROCHLORIDE
     Dosage: 10 MG
     Route: 065
     Dates: start: 20210208
  17. MANIDIPINE HYDROCHLORIDE [Concomitant]
     Active Substance: MANIDIPINE HYDROCHLORIDE
     Dosage: 10 MG
     Route: 065
     Dates: start: 20210503
  18. CODEPECT [Concomitant]
     Indication: Product used for unknown indication
     Dosage: UNK
     Route: 065
     Dates: start: 20210405
  19. CODEPECT [Concomitant]
     Dosage: UNK
     Route: 065
     Dates: start: 20210503

REACTIONS (4)
  - Tumour flare [Unknown]
  - Blood test abnormal [Unknown]
  - Lung disorder [Unknown]
  - Drug ineffective [Unknown]
